FAERS Safety Report 19511733 (Version 1)
Quarter: 2021Q3

REPORT INFORMATION
  Report Type: Report from Study
  Country: JP (occurrence: JP)
  Receive Date: 20210709
  Receipt Date: 20210709
  Transmission Date: 20211014
  Serious: Yes (Hospitalization)
  Sender: FDA-Public Use
  Company Number: JP-BAXTER-2020BAX015870

PATIENT
  Age: 58 Year
  Sex: Female

DRUGS (9)
  1. PEGFILGRASTIM(GENETICAL RECOMBINATION) [Suspect]
     Active Substance: PEGFILGRASTIM
     Route: 058
     Dates: start: 20200815, end: 20200815
  2. PACLITAXEL. [Suspect]
     Active Substance: PACLITAXEL
     Indication: TRIPLE NEGATIVE BREAST CANCER
     Dosage: DOSE: 80 MG/M2, FOR 12 WEEKS 9
     Route: 042
     Dates: start: 20200424
  3. PEGFILGRASTIM(GENETICAL RECOMBINATION) [Suspect]
     Active Substance: PEGFILGRASTIM
     Indication: TRIPLE NEGATIVE BREAST CANCER
     Route: 058
     Dates: start: 20200711, end: 20200711
  4. PEGFILGRASTIM(GENETICAL RECOMBINATION) [Suspect]
     Active Substance: PEGFILGRASTIM
     Route: 058
     Dates: start: 20200801, end: 20200801
  5. PEGFILGRASTIM(GENETICAL RECOMBINATION) [Suspect]
     Active Substance: PEGFILGRASTIM
     Route: 058
     Dates: start: 20200829, end: 20200829
  6. ENDOXAN 1G [Suspect]
     Active Substance: CYCLOPHOSPHAMIDE
     Indication: TRIPLE NEGATIVE BREAST CANCER
     Dosage: DDEC THERAPY, FIRST DOSE, DOSE: 600 MG/M2, LAST DOSE PRIOR TO SAE
     Route: 042
     Dates: start: 20200710, end: 20200710
  7. ATEZOLIZUMAB(GENETICAL RECOMBINATION) [Concomitant]
     Active Substance: ATEZOLIZUMAB
     Indication: BREAST CANCER
     Route: 042
  8. DOXIL [Suspect]
     Active Substance: DOXORUBICIN HYDROCHLORIDE
     Indication: BREAST CANCER
     Route: 042
  9. EPIRUBICIN HYDROCHLORIDE. [Suspect]
     Active Substance: EPIRUBICIN HYDROCHLORIDE
     Indication: TRIPLE NEGATIVE BREAST CANCER
     Dosage: DDEC THERAPY, FIRST DOSE, DOSE: 90 MG/M2, LAST DOSE PRIOR TO SAE
     Route: 042
     Dates: start: 20200710, end: 20200710

REACTIONS (1)
  - Febrile neutropenia [Recovered/Resolved]

NARRATIVE: CASE EVENT DATE: 20200716
